FAERS Safety Report 9168940 (Version 1)
Quarter: 2013Q1

REPORT INFORMATION
  Report Type: Spontaneous
  Country: US (occurrence: None)
  Receive Date: 20130314
  Receipt Date: 20130314
  Transmission Date: 20140127
  Serious: Yes (Hospitalization)
  Sender: FDA-Public Use
  Company Number: None

PATIENT
  Age: 58 Year
  Sex: Male
  Weight: 79.9 kg

DRUGS (1)
  1. CLOZAPINE 200 MG [Suspect]
     Indication: SCHIZOAFFECTIVE DISORDER
     Route: 048
     Dates: start: 20111118

REACTIONS (4)
  - Intestinal obstruction [None]
  - Ileus [None]
  - Renal failure chronic [None]
  - Renal failure acute [None]
